FAERS Safety Report 16580326 (Version 1)
Quarter: 2019Q3

REPORT INFORMATION
  Report Type: Spontaneous
  Country: ES (occurrence: ES)
  Receive Date: 20190716
  Receipt Date: 20190716
  Transmission Date: 20191004
  Serious: Yes (Hospitalization)
  Sender: FDA-Public Use
  Company Number: ES-PFIZER INC-2019297457

PATIENT
  Age: 83 Year
  Sex: Female

DRUGS (6)
  1. LORAZEPAM. [Suspect]
     Active Substance: LORAZEPAM
     Dosage: 1 MG, 2X/DAY (12H)
     Route: 048
     Dates: start: 20180308, end: 20180324
  2. DAONIL [Suspect]
     Active Substance: GLYBURIDE
     Dosage: 5 MG, 1X/DAY
     Route: 048
     Dates: start: 20180308, end: 20180324
  3. MORPHINE [Suspect]
     Active Substance: MORPHINE
     Dosage: 10 MG, 1X/DAY
     Route: 048
     Dates: start: 20180308, end: 20180324
  4. DEPRAX [FLUOXETINE HYDROCHLORIDE] [Suspect]
     Active Substance: FLUOXETINE HYDROCHLORIDE
     Dosage: 100 MG, 1X/DAY
     Route: 048
     Dates: start: 20180308, end: 20180324
  5. TRAMADOL. [Suspect]
     Active Substance: TRAMADOL
     Dosage: 50 MG, 1X/DAY
     Route: 048
     Dates: start: 20180308, end: 20180324
  6. AMILORIDE/HYDROCHLOROTHIAZIDE [Suspect]
     Active Substance: AMILORIDE HYDROCHLORIDE\HYDROCHLOROTHIAZIDE
     Dosage: 1 DF, 1X/DAY
     Route: 048
     Dates: start: 20180308, end: 20180324

REACTIONS (2)
  - Inappropriate antidiuretic hormone secretion [Recovered/Resolved]
  - Hyponatraemia [Recovered/Resolved]

NARRATIVE: CASE EVENT DATE: 20180324
